FAERS Safety Report 8131868-3 (Version None)
Quarter: 2012Q1

REPORT INFORMATION
  Report Type: 
  Country: None (occurrence: None)
  Receive Date: 20120213
  Receipt Date: 20120211
  Transmission Date: 20120608
  Serious: Yes (Other)
  Sender: FDA-Public Use
  Company Number: US-PFIZER INC-2012037332

PATIENT
  Sex: Male
  Weight: 77.098 kg

DRUGS (4)
  1. CHANTIX [Suspect]
     Dosage: 1 MG, UNK
     Route: 048
     Dates: start: 20110101, end: 20111201
  2. CHANTIX [Suspect]
     Dosage: 1 MG, 2X/DAY
     Route: 048
     Dates: start: 20110101, end: 20110101
  3. CHANTIX [Suspect]
     Indication: SMOKING CESSATION THERAPY
     Dosage: 0.5 MG, DAILY
     Route: 048
     Dates: start: 20111101, end: 20110101
  4. SYNTHROID [Concomitant]
     Indication: THYROID DISORDER
     Dosage: 100 MG, DAILY
     Route: 048

REACTIONS (4)
  - AGGRESSION [None]
  - THYROID DISORDER [None]
  - DRUG INTOLERANCE [None]
  - IRRITABILITY [None]
